FAERS Safety Report 4786117-0 (Version None)
Quarter: 2005Q3

REPORT INFORMATION
  Report Type: 
  Country: None (occurrence: None)
  Receive Date: 20050930
  Receipt Date: 20050919
  Transmission Date: 20060218
  Serious: Yes (Death, Hospitalization)
  Sender: FDA-Public Use
  Company Number: 2005126146

PATIENT
  Age: 15 Year
  Sex: Female

DRUGS (14)
  1. VORICONAZOLE               (VORICONAZOLE) [Suspect]
     Indication: HODGKIN'S DISEASE
     Dosage: 200 MG (200 MG, QD), INTRAVENOUS
     Route: 042
     Dates: start: 20050530, end: 20050530
  2. PREDNISOLONE [Concomitant]
  3. DOXORUBICIN HCL [Concomitant]
  4. ETOPOSIDE [Concomitant]
  5. NISTATIN (NYSTATIN) [Concomitant]
  6. KETOCONAZOLE [Concomitant]
  7. METRONIDAZOLE [Concomitant]
  8. AMOKSIKLAV (AMOXICILLIN, CLAVULANIC ACID) [Concomitant]
  9. ACYCLOVIR [Concomitant]
  10. SULPERAZON (CEFOPERAZONE, SULBACTAM) [Concomitant]
  11. LENOGRASTIM (LENOGRASTIM) [Concomitant]
  12. AMIKACIN [Concomitant]
  13. OMEPRAZOLE [Concomitant]
  14. IMMUNOGLOBULINS (IMMUNOGLOBULINS) [Concomitant]

REACTIONS (5)
  - BRAIN OEDEMA [None]
  - HEPATIC HAEMORRHAGE [None]
  - HEPATORENAL FAILURE [None]
  - RENAL HAEMORRHAGE [None]
  - RENAL NECROSIS [None]
